FAERS Safety Report 20153971 (Version 2)
Quarter: 2022Q1

REPORT INFORMATION
  Report Type: Spontaneous
  Country: CN (occurrence: CN)
  Receive Date: 20211207
  Receipt Date: 20220325
  Transmission Date: 20220424
  Serious: Yes (Other)
  Sender: FDA-Public Use
  Company Number: CN-SUN PHARMACEUTICAL INDUSTRIES LTD-2021R1-319432

PATIENT
  Age: 70 Year
  Sex: Male

DRUGS (1)
  1. DROXIDOPA [Suspect]
     Active Substance: DROXIDOPA
     Indication: Hypotension
     Dosage: 100 MILLIGRAM, DAILY
     Route: 048

REACTIONS (1)
  - Drug ineffective [Unknown]
